FAERS Safety Report 6259120-1 (Version None)
Quarter: 2009Q3

REPORT INFORMATION
  Report Type: 
  Country: None (occurrence: None)
  Receive Date: 20090707
  Receipt Date: 20090624
  Transmission Date: 20100115
  Serious: Yes (Other)
  Sender: FDA-Public Use
  Company Number: DE-MYLANLABS-2009S1011285

PATIENT
  Age: 48 Year
  Sex: Male
  Weight: 120 kg

DRUGS (9)
  1. OXCARBAZEPINE [Suspect]
     Indication: CEREBROVASCULAR ACCIDENT
     Route: 048
     Dates: start: 20050101
  2. LAMOTRIGIN [Suspect]
     Indication: HYPERTENSION
     Dosage: 200-0-250-0
     Route: 048
  3. ENALAPRIL [Suspect]
     Indication: HYPERTENSION
     Dosage: DAILY DOSE: 2 DF DOSAGE FORM EVERY DAY
     Route: 048
  4. METOPROLOL TARTRATE [Suspect]
     Indication: DRUG USE FOR UNKNOWN INDICATION
     Dosage: DAILY DOSE: 2 DF DOSAGE FORM EVERY DAY
     Route: 048
  5. TARDYFERON FOLSAURE [Suspect]
     Indication: HYPOVITAMINOSIS
     Dosage: DAILY DOSE: 1 DF DOSAGE FORM EVERY DAY
     Route: 048
  6. SIMVASTATIN [Suspect]
     Indication: LIPID METABOLISM DISORDER
     Dosage: DAILY DOSE: 1 DF DOSAGE FORM EVERY DAY
     Route: 048
  7. BACLOFEN [Suspect]
     Indication: DRUG USE FOR UNKNOWN INDICATION
     Dosage: DAILY DOSE: 2 DF DOSAGE FORM EVERY DAY
     Route: 048
  8. HYDROCHLOROTHIAZIDE [Suspect]
     Indication: HYPERTENSION
     Dosage: DAILY DOSE: 1 DF DOSAGE FORM EVERY DAY
     Route: 048
  9. CIPRALEX [Suspect]
     Indication: DEPRESSION
     Route: 048

REACTIONS (1)
  - PURPURA [None]
